FAERS Safety Report 21221468 (Version 1)
Quarter: 2022Q3

REPORT INFORMATION
  Report Type: Spontaneous
  Country: US (occurrence: None)
  Receive Date: 20220816
  Receipt Date: 20220816
  Transmission Date: 20221026
  Serious: Yes (Hospitalization, Other)
  Sender: FDA-Public Use
  Company Number: None

PATIENT
  Age: 37 Year
  Sex: Male
  Weight: 95.5 kg

DRUGS (3)
  1. TAMIFLU [Suspect]
     Active Substance: OSELTAMIVIR PHOSPHATE
     Indication: Influenza
     Dosage: FREQUENCY : TWICE A DAY;?
     Route: 048
     Dates: start: 20220804, end: 20220808
  2. IBUPROFEN [Concomitant]
     Active Substance: IBUPROFEN
  3. ACETAMINOPHEN [Concomitant]
     Active Substance: ACETAMINOPHEN

REACTIONS (8)
  - Oral pain [None]
  - Mouth ulceration [None]
  - Mucosal inflammation [None]
  - Stevens-Johnson syndrome [None]
  - Lymphadenopathy [None]
  - Oropharyngeal pain [None]
  - Ocular hyperaemia [None]
  - Eye swelling [None]

NARRATIVE: CASE EVENT DATE: 20220809
